FAERS Safety Report 11554167 (Version 3)
Quarter: 2015Q4

REPORT INFORMATION
  Report Type: Spontaneous
  Country: US (occurrence: US)
  Receive Date: 20150903
  Receipt Date: 20151104
  Transmission Date: 20160304
  Serious: No
  Sender: FDA-Public Use
  Company Number: US-ELI_LILLY_AND_COMPANY-US201008002657

PATIENT
  Sex: Female

DRUGS (6)
  1. LEVEMIR [Concomitant]
     Active Substance: INSULIN DETEMIR
  2. CORTICOSTEROIDS AND MYDRIATICS IN COMBINATION [Concomitant]
     Indication: DACRYOSTENOSIS ACQUIRED
  3. FORTEO [Suspect]
     Active Substance: TERIPARATIDE
     Indication: OSTEOPOROSIS
     Dosage: 20 UG, DAILY (1/D)
     Dates: start: 201002
  4. JANUMET [Concomitant]
     Active Substance: METFORMIN HYDROCHLORIDE\SITAGLIPTIN PHOSPHATE
  5. HUMALOG [Suspect]
     Active Substance: INSULIN LISPRO
     Indication: DIABETES MELLITUS
  6. VICTOZA [Concomitant]
     Active Substance: LIRAGLUTIDE
     Indication: DIABETES MELLITUS
     Dosage: UNK, UNKNOWN

REACTIONS (7)
  - Dry eye [Unknown]
  - Muscle spasms [Not Recovered/Not Resolved]
  - Dacryostenosis acquired [Unknown]
  - Vomiting [Recovered/Resolved]
  - Diabetes mellitus [Recovering/Resolving]
  - Corneal irritation [Unknown]
  - Nausea [Unknown]
